FAERS Safety Report 7824299-4 (Version None)
Quarter: 2011Q4

REPORT INFORMATION
  Report Type: 
  Country: None (occurrence: None)
  Receive Date: 20111014
  Receipt Date: 20111003
  Transmission Date: 20120403
  Serious: Yes (Other)
  Sender: FDA-Public Use
  Company Number: 2011MA014791

PATIENT
  Age: 60 Year
  Sex: Female

DRUGS (6)
  1. AMLODIPINE [Concomitant]
  2. DIAZEPAM [Suspect]
     Indication: BIPOLAR DISORDER
     Dosage: 15 MG; BID; PO
     Route: 048
     Dates: start: 20110826, end: 20110914
  3. QUETIAPINE FUMARATE [Suspect]
     Indication: BIPOLAR I DISORDER
     Dosage: 600 MG;QD;PO
     Route: 048
     Dates: start: 20110904, end: 20110914
  4. VALPROIC ACID [Concomitant]
  5. TRAVOPROST [Concomitant]
  6. LISINOPRIL [Concomitant]

REACTIONS (7)
  - CONFUSIONAL STATE [None]
  - COMA SCALE ABNORMAL [None]
  - SOMNOLENCE [None]
  - TACHYCARDIA [None]
  - VISION BLURRED [None]
  - ATAXIA [None]
  - HYPOTENSION [None]
